FAERS Safety Report 16525181 (Version 1)
Quarter: 2019Q3

REPORT INFORMATION
  Report Type: Spontaneous
  Country: NO (occurrence: NO)
  Receive Date: 20190702
  Receipt Date: 20190702
  Transmission Date: 20191004
  Serious: Yes (Life-Threatening)
  Sender: FDA-Public Use
  Company Number: PHHY2019NO151638

PATIENT
  Age: 31 Year
  Sex: Female
  Weight: 95 kg

DRUGS (2)
  1. VENTOLINE [Concomitant]
     Active Substance: ALBUTEROL
     Indication: PRODUCT USED FOR UNKNOWN INDICATION
     Dosage: UNK
     Route: 065
  2. RITALIN [Suspect]
     Active Substance: METHYLPHENIDATE HYDROCHLORIDE
     Indication: ATTENTION DEFICIT/HYPERACTIVITY DISORDER
     Dosage: 20 MG, Q12H (20 MG IN THE MORNING, 10 OR 20 MG IN THE EVENING)
     Route: 065
     Dates: start: 20190308, end: 20190501

REACTIONS (16)
  - Balance disorder [Unknown]
  - Throat tightness [Unknown]
  - Chest discomfort [Unknown]
  - Peripheral coldness [Recovering/Resolving]
  - Chest pain [Unknown]
  - Sensation of foreign body [Unknown]
  - Hypertension [Unknown]
  - Heart rate irregular [Recovering/Resolving]
  - Dizziness [Unknown]
  - Palpitations [Unknown]
  - Dry mouth [Unknown]
  - Heart rate decreased [Unknown]
  - Heart rate increased [Unknown]
  - Bundle branch block right [Recovering/Resolving]
  - Headache [Unknown]
  - Dyspnoea [Unknown]

NARRATIVE: CASE EVENT DATE: 20190414
